FAERS Safety Report 9324209 (Version 3)
Quarter: 2013Q3

REPORT INFORMATION
  Report Type: Spontaneous
  Country: US (occurrence: US)
  Receive Date: 20130603
  Receipt Date: 20130726
  Transmission Date: 20140515
  Serious: Yes (Disabling, Other)
  Sender: FDA-Public Use
  Company Number: US-TEVA-408947USA

PATIENT
  Sex: Male

DRUGS (2)
  1. METHOTREXATE [Suspect]
     Indication: PSORIATIC ARTHROPATHY
  2. REMICADE [Suspect]

REACTIONS (9)
  - Cardiac failure [Unknown]
  - Pain [Unknown]
  - Vitamin C deficiency [Unknown]
  - Gingival recession [Unknown]
  - Bone disorder [Unknown]
  - Tooth loss [Unknown]
  - Tooth disorder [Unknown]
  - Tooth discolouration [Unknown]
  - Urticaria [Unknown]
